FAERS Safety Report 23732200 (Version 2)
Quarter: 2024Q2

REPORT INFORMATION
  Report Type: Spontaneous
  Country: JP (occurrence: JP)
  Receive Date: 20240411
  Receipt Date: 20240606
  Transmission Date: 20240716
  Serious: Yes (Death, Hospitalization, Other)
  Sender: FDA-Public Use
  Company Number: JP-ELI_LILLY_AND_COMPANY-JP202402005731

PATIENT
  Age: 82 Year
  Sex: Female
  Weight: 71 kg

DRUGS (8)
  1. RETEVMO [Suspect]
     Active Substance: SELPERCATINIB
     Indication: Non-small cell lung cancer recurrent
     Dosage: 160 MG, BID
     Route: 048
     Dates: start: 20240122, end: 20240207
  2. RETEVMO [Suspect]
     Active Substance: SELPERCATINIB
     Dosage: 40 MG, BID
     Route: 048
     Dates: start: 20240222, end: 20240228
  3. RETEVMO [Suspect]
     Active Substance: SELPERCATINIB
     Dosage: 80 MG, BID
     Route: 048
     Dates: start: 20240229
  4. DOMPERIDONE [Concomitant]
     Active Substance: DOMPERIDONE
     Dosage: 10 MG, TID
     Dates: start: 20221130
  5. MOSAPRIDE [Concomitant]
     Active Substance: MOSAPRIDE
     Dosage: 5 MG, TID
     Dates: start: 20221130
  6. FAMOTIDINE [Concomitant]
     Active Substance: FAMOTIDINE
     Dosage: 10 MG, BID
     Dates: start: 20221130
  7. AMLODIPINE BESYLATE [Concomitant]
     Active Substance: AMLODIPINE BESYLATE
     Dosage: 5 MG, DAILY
  8. TENELIA OD [Concomitant]
     Dosage: 20 MG, DAILY

REACTIONS (10)
  - Multiple organ dysfunction syndrome [Fatal]
  - Shock [Fatal]
  - Dehydration [Fatal]
  - Disseminated intravascular coagulation [Unknown]
  - Decreased appetite [Unknown]
  - Platelet count decreased [Unknown]
  - Hypersensitivity [Recovered/Resolved]
  - Diarrhoea [Unknown]
  - Platelet count decreased [Recovered/Resolved]
  - Dry mouth [Unknown]

NARRATIVE: CASE EVENT DATE: 20240122
